FAERS Safety Report 13997953 (Version 1)
Quarter: 2017Q3

REPORT INFORMATION
  Report Type: Spontaneous
  Country: ES (occurrence: ES)
  Receive Date: 20170921
  Receipt Date: 20170921
  Transmission Date: 20171128
  Serious: Yes (Other)
  Sender: FDA-Public Use
  Company Number: ES-SA-2017SA167222

PATIENT
  Age: 63 Year
  Sex: Female
  Weight: 80 kg

DRUGS (2)
  1. CLEXANE [Suspect]
     Active Substance: ENOXAPARIN SODIUM
     Indication: HEPATOTOXICITY
     Route: 058
     Dates: start: 20170524, end: 20170531
  2. PARACETAMOL [Suspect]
     Active Substance: ACETAMINOPHEN
     Route: 042
     Dates: start: 20170524, end: 20170607

REACTIONS (1)
  - Hypertransaminasaemia [Recovered/Resolved]

NARRATIVE: CASE EVENT DATE: 20170530
